FAERS Safety Report 4979514-1 (Version None)
Quarter: 2006Q2

REPORT INFORMATION
  Report Type: 
  Country: None (occurrence: None)
  Receive Date: 20060421
  Receipt Date: 20060329
  Transmission Date: 20061013
  Serious: Yes (Hospitalization)
  Sender: FDA-Public Use
  Company Number: PHBS2006JP04906

PATIENT
  Age: 46 Year
  Sex: Male

DRUGS (3)
  1. TOFRANIL [Suspect]
     Indication: DEPRESSION
     Dosage: 225 MG/D
     Route: 048
  2. AMOXAPINE [Concomitant]
     Indication: DEPRESSION
     Dosage: 150 MG/D
     Route: 065
  3. PAROXETINE HYDROCHLORIDE [Concomitant]
     Indication: DEPRESSION
     Dosage: 20 MG/D
     Route: 065

REACTIONS (6)
  - CARDIAC FAILURE [None]
  - CARDIAC VENTRICULAR DISORDER [None]
  - CARDIOMYOPATHY [None]
  - DYSPNOEA [None]
  - ECHOCARDIOGRAM ABNORMAL [None]
  - HYPOKINESIA [None]
